FAERS Safety Report 7832950-8 (Version None)
Quarter: 2011Q4

REPORT INFORMATION
  Report Type: 
  Country: None (occurrence: None)
  Receive Date: 20111019
  Receipt Date: 20111005
  Transmission Date: 20120403
  Serious: Yes (Hospitalization, Other)
  Sender: FDA-Public Use
  Company Number: CIP11000589

PATIENT
  Age: 64 Year
  Sex: Female
  Weight: 55.8 kg

DRUGS (31)
  1. FOSAMAX [Suspect]
     Indication: OSTEOPOROSIS
     Dosage: 70 MG ONCE WEEKLY, ORAL, 70 MG ONCE WEEKLY, ORAL
     Route: 048
     Dates: start: 20020701, end: 20021106
  2. FOSAMAX [Suspect]
     Indication: OSTEOPENIA
     Dosage: 70 MG ONCE WEEKLY, ORAL, 70 MG ONCE WEEKLY, ORAL
     Route: 048
     Dates: start: 20020701, end: 20021106
  3. FOSAMAX [Suspect]
     Indication: OSTEOPOROSIS
     Dosage: 70 MG ONCE WEEKLY, ORAL, 70 MG ONCE WEEKLY, ORAL
     Route: 048
     Dates: start: 20051001, end: 20070308
  4. FOSAMAX [Suspect]
     Indication: OSTEOPENIA
     Dosage: 70 MG ONCE WEEKLY, ORAL, 70 MG ONCE WEEKLY, ORAL
     Route: 048
     Dates: start: 20051001, end: 20070308
  5. ECHINACEA (ECHINACEA PURPUREA) [Concomitant]
  6. ASCORBIC ACID [Concomitant]
  7. FAMOTIDINE [Concomitant]
  8. OMEPRAZOLE [Concomitant]
  9. VITAMIN E [Concomitant]
  10. BLACK COHOSH (CIMICIFUGA RACEMOSA ROOT) [Concomitant]
  11. IBUPROFEN (ADVIL) [Concomitant]
  12. TRIAMCINOLONE [Concomitant]
  13. PREMARIN [Concomitant]
  14. GLUCOSAMINE (GLUCOSAMINE) [Concomitant]
  15. FLONASE [Concomitant]
  16. VIOXX [Concomitant]
  17. ACTONEL [Suspect]
     Indication: OSTEOPOROSIS
     Dosage: 5 MG DAILY, ORAL
     Route: 048
     Dates: start: 20030303, end: 20051001
  18. ACTONEL [Suspect]
     Indication: OSTEOPENIA
     Dosage: 5 MG DAILY, ORAL
     Route: 048
     Dates: start: 20030303, end: 20051001
  19. FOSAMAX PLUS D [Suspect]
     Dosage: 70 MG ONCE WEEKLY, ORAL
     Route: 048
     Dates: start: 20070308, end: 20090101
  20. MIACALCIN [Concomitant]
  21. ALLEGRA [Concomitant]
  22. CALCIUM CARBONATE [Concomitant]
  23. HERBAL PREPARATION [Concomitant]
  24. LACTAID (TILACTASE) [Concomitant]
  25. LOVASTATIN [Concomitant]
  26. BETA CAROTENE (BETACAROTENE) [Concomitant]
  27. ADVAIR HFA [Concomitant]
  28. GINKO BILOBA (GINKGO BILOBA) [Concomitant]
  29. ALBUTEROL [Concomitant]
  30. FLOVENT [Concomitant]
  31. NABUMETONE [Concomitant]

REACTIONS (17)
  - BONE PAIN [None]
  - ARTHRALGIA [None]
  - BONE DISORDER [None]
  - DYSSTASIA [None]
  - ANAEMIA POSTOPERATIVE [None]
  - FRACTURE DISPLACEMENT [None]
  - FRACTURE DELAYED UNION [None]
  - FEMUR FRACTURE [None]
  - FALL [None]
  - PAIN IN EXTREMITY [None]
  - LOW TURNOVER OSTEOPATHY [None]
  - LIMB ASYMMETRY [None]
  - OPERATIVE HAEMORRHAGE [None]
  - OEDEMA PERIPHERAL [None]
  - STRESS FRACTURE [None]
  - MUSCULOSKELETAL PAIN [None]
  - JOINT SWELLING [None]
